FAERS Safety Report 24340688 (Version 1)
Quarter: 2024Q3

REPORT INFORMATION
  Report Type: Spontaneous
  Country: CA (occurrence: CA)
  Receive Date: 20240919
  Receipt Date: 20240919
  Transmission Date: 20241016
  Serious: Yes (Death)
  Sender: TEVA
  Company Number: CA-TEVA-VS-3243485

PATIENT
  Age: 66 Year
  Sex: Female

DRUGS (2)
  1. PACLITAXEL [Suspect]
     Active Substance: PACLITAXEL
     Indication: Adenocarcinoma metastatic
     Dosage: LIQUID INTRAVENOUS
     Route: 065
  2. CARBOPLATIN [Suspect]
     Active Substance: CARBOPLATIN
     Indication: Adenocarcinoma metastatic
     Dosage: DOSE FORM : SOLUTION INTRAVENOUS
     Route: 065

REACTIONS (7)
  - Escherichia infection [Fatal]
  - Listeriosis [Fatal]
  - Multiple organ dysfunction syndrome [Fatal]
  - Neutropenia [Fatal]
  - Pancytopenia [Fatal]
  - Septic shock [Fatal]
  - Vasoplegia syndrome [Fatal]
